FAERS Safety Report 6091606-5 (Version None)
Quarter: 2009Q1

REPORT INFORMATION
  Report Type: 
  Country: None (occurrence: None)
  Receive Date: 20090225
  Receipt Date: 20080213
  Transmission Date: 20090719
  Serious: No
  Sender: FDA-Public Use
  Company Number: A0710306A

PATIENT
  Sex: Female

DRUGS (2)
  1. VALTREX [Suspect]
     Indication: GENITAL HERPES
     Route: 048
  2. MIRENA [Concomitant]
     Route: 015

REACTIONS (4)
  - DRUG INEFFECTIVE [None]
  - PAIN [None]
  - RASH PAPULAR [None]
  - VULVOVAGINAL PRURITUS [None]
